FAERS Safety Report 14072810 (Version 1)
Quarter: 2017Q4

REPORT INFORMATION
  Report Type: Spontaneous
  Country: US (occurrence: US)
  Receive Date: 20171010
  Receipt Date: 20171010
  Transmission Date: 20180321
  Serious: No
  Sender: FDA-Public Use
  Company Number: US-JNJFOC-20170711499

PATIENT
  Age: 74 Year
  Sex: Female
  Weight: 44.45 kg

DRUGS (3)
  1. ZANTAC [Concomitant]
     Active Substance: RANITIDINE HYDROCHLORIDE
     Indication: DYSPEPSIA
     Dosage: TWO TIMES
     Route: 065
  2. ALIGN [Concomitant]
     Active Substance: BIFIDOBACTERIUM LONGUM SUBSP. INFANTIS
     Indication: DYSPEPSIA
     Route: 065
  3. TYLENOL REGULAR STRENGTH [Suspect]
     Active Substance: ACETAMINOPHEN
     Indication: HEADACHE
     Dosage: 1 LIQUID GEL (325 MG), ONCE
     Route: 048

REACTIONS (5)
  - Choking sensation [Recovered/Resolved]
  - Foreign body in respiratory tract [Recovered/Resolved]
  - Incorrect dose administered [Recovered/Resolved]
  - Product size issue [Unknown]
  - Retching [Recovered/Resolved]
